FAERS Safety Report 16321847 (Version 5)
Quarter: 2021Q1

REPORT INFORMATION
  Report Type: Spontaneous
  Country: US (occurrence: US)
  Receive Date: 20190516
  Receipt Date: 20210308
  Transmission Date: 20210419
  Serious: Yes (Other)
  Sender: FDA-Public Use
  Company Number: US-GLAXOSMITHKLINE-US2019GSK085564

PATIENT
  Age: 56 Year
  Sex: Male

DRUGS (4)
  1. PRILOSEC OTC [Suspect]
     Active Substance: OMEPRAZOLE MAGNESIUM
     Indication: DYSPEPSIA
     Dosage: 20 MG
     Route: 065
     Dates: start: 2002, end: 2007
  2. ZEGERID [Suspect]
     Active Substance: OMEPRAZOLE\SODIUM BICARBONATE
     Indication: DYSPEPSIA
     Dosage: 20 MG
     Route: 065
     Dates: start: 2008, end: 2014
  3. NEXIUM 24HR [Suspect]
     Active Substance: ESOMEPRAZOLE MAGNESIUM
     Indication: DYSPEPSIA
     Dosage: 20 MG
     Route: 065
     Dates: start: 2007, end: 2014
  4. PREVACID 24 HR [Suspect]
     Active Substance: LANSOPRAZOLE
     Indication: DYSPEPSIA
     Dosage: 15 MG
     Route: 048
     Dates: start: 20090518

REACTIONS (10)
  - Acute kidney injury [Unknown]
  - Renal impairment [Unknown]
  - Diabetic nephropathy [Unknown]
  - Chronic kidney disease [Unknown]
  - End stage renal disease [Unknown]
  - Nephropathy [Unknown]
  - Nephrotic syndrome [Unknown]
  - Nephrolithiasis [Unknown]
  - Dialysis [Unknown]
  - Proteinuria [Unknown]

NARRATIVE: CASE EVENT DATE: 200808
